FAERS Safety Report 6978734-4 (Version None)
Quarter: 2010Q3

REPORT INFORMATION
  Report Type: 
  Country: None (occurrence: None)
  Receive Date: 20100913
  Receipt Date: 20100902
  Transmission Date: 20110219
  Serious: Yes (Other)
  Sender: FDA-Public Use
  Company Number: B0674121A

PATIENT
  Sex: Male

DRUGS (1)
  1. LAMICTAL [Suspect]
     Indication: EPILEPSY
     Route: 048
     Dates: start: 20081215

REACTIONS (4)
  - DYSPHAGIA [None]
  - DYSPHONIA [None]
  - FACE OEDEMA [None]
  - RASH PRURITIC [None]
